FAERS Safety Report 5135178-8 (Version None)
Quarter: 2006Q4

REPORT INFORMATION
  Report Type: 
  Country: None (occurrence: None)
  Receive Date: 20061026
  Receipt Date: 20061017
  Transmission Date: 20070319
  Serious: Yes (Other)
  Sender: FDA-Public Use
  Company Number: DE-BAYER-200611374BVD

PATIENT
  Age: 40 Year
  Sex: Female

DRUGS (6)
  1. SORAFENIB [Suspect]
     Indication: MALIGNANT MELANOMA
     Dosage: TOTAL DAILY DOSE: 800 MG  UNIT DOSE: 400 MG
     Route: 048
     Dates: start: 20060303, end: 20060314
  2. PACLITAXEL [Suspect]
     Route: 042
     Dates: start: 20060302, end: 20060302
  3. CARBOPLATIN [Suspect]
     Route: 042
     Dates: start: 20060302, end: 20060302
  4. NOVAMINSULFON [Concomitant]
     Indication: PAIN
     Route: 048
     Dates: start: 20060217
  5. KALINOR [Concomitant]
  6. RED BLOOD CELLS [Concomitant]

REACTIONS (1)
  - VENOUS THROMBOSIS LIMB [None]
